FAERS Safety Report 8222894-4 (Version None)
Quarter: 2012Q1

REPORT INFORMATION
  Report Type: 
  Country: None (occurrence: None)
  Receive Date: 20120320
  Receipt Date: 20120305
  Transmission Date: 20120608
  Serious: Yes (Other)
  Sender: FDA-Public Use
  Company Number: CHPA2012US004533

PATIENT
  Age: 68 Year
  Sex: Female

DRUGS (6)
  1. BENEFIBER W/ WHEAT DEXTRIN [Suspect]
     Indication: FREQUENT BOWEL MOVEMENTS
     Dosage: 3 TSP, QD
     Route: 048
  2. ANTIHYPERTENSIVES [Concomitant]
     Indication: HYPERTENSION
     Dosage: UNK, UNK
  3. IMODIUM [Concomitant]
     Indication: DIARRHOEA
     Dosage: UNK, UNK
  4. TOPAMAX [Concomitant]
     Indication: PROPHYLAXIS
     Dosage: UNK, UNK
  5. LEVOXYL [Concomitant]
     Dosage: UNK, UNK
  6. LIPITOR [Concomitant]
     Indication: BLOOD CHOLESTEROL INCREASED
     Dosage: UNK, UNK

REACTIONS (6)
  - THERAPEUTIC RESPONSE UNEXPECTED [None]
  - DEMENTIA [None]
  - INCORRECT DOSE ADMINISTERED [None]
  - BRAIN NEOPLASM [None]
  - HEADACHE [None]
  - OFF LABEL USE [None]
